FAERS Safety Report 9660673 (Version 3)
Quarter: 2013Q4

REPORT INFORMATION
  Report Type: Spontaneous
  Country: US (occurrence: US)
  Receive Date: 20131031
  Receipt Date: 20131203
  Transmission Date: 20140711
  Serious: Yes (Hospitalization, Congenital Anomaly)
  Sender: FDA-Public Use
  Company Number: US-BAYER-2013-130380

PATIENT
  Age: 0 Year
  Sex: Male
  Weight: 4 kg

DRUGS (5)
  1. BAYER ASPIRIN REGIMEN ADULT LOW STRENGTH [Suspect]
     Indication: PROPHYLAXIS
     Dosage: 81 MG, DAILY DOSE
     Route: 064
     Dates: start: 20120905, end: 20121213
  2. VALSARTAN [Suspect]
     Indication: HYPERTENSION
     Dosage: 320 MG, UNK
     Route: 064
     Dates: start: 20121102, end: 20121213
  3. FAMOTIDINE [Suspect]
     Indication: GASTROOESOPHAGEAL REFLUX DISEASE
     Dosage: UNK
     Route: 064
     Dates: start: 20120905, end: 20121213
  4. ZANTAC [Concomitant]
     Indication: GASTROOESOPHAGEAL REFLUX DISEASE
     Dosage: UNK
     Dates: end: 20130901
  5. POLY-VI-SOL W/IRON [Concomitant]
     Dosage: 1 ML, QD
     Route: 048

REACTIONS (13)
  - Trisomy 21 [Not Recovered/Not Resolved]
  - Hypotonia neonatal [Not Recovered/Not Resolved]
  - Anal atresia [Recovering/Resolving]
  - Abdominal distension [Recovering/Resolving]
  - Neonatal respiratory distress syndrome [Recovered/Resolved]
  - Atrial septal defect [None]
  - Gastroenteritis rotavirus [Recovering/Resolving]
  - Pyrexia [Recovering/Resolving]
  - Diarrhoea neonatal [Recovering/Resolving]
  - Bradycardia neonatal [Recovering/Resolving]
  - Foetal exposure during pregnancy [None]
  - Bladder disorder [Recovered/Resolved]
  - Blood bilirubin increased [Recovered/Resolved]
